FAERS Safety Report 7533373-1 (Version None)
Quarter: 2011Q2

REPORT INFORMATION
  Report Type: 
  Country: None (occurrence: None)
  Receive Date: 20110608
  Receipt Date: 20051018
  Transmission Date: 20111010
  Serious: Yes (Death)
  Sender: FDA-Public Use
  Company Number: PHHO2005PH05715

PATIENT
  Sex: Female

DRUGS (2)
  1. HYDROXYUREA [Concomitant]
     Indication: CHRONIC MYELOID LEUKAEMIA
  2. GLEEVEC [Suspect]
     Indication: CHRONIC MYELOID LEUKAEMIA
     Route: 048
     Dates: start: 20030606, end: 20041101

REACTIONS (2)
  - DRUG EXPOSURE DURING PREGNANCY [None]
  - DEATH [None]
